FAERS Safety Report 23692466 (Version 3)
Quarter: 2025Q1

REPORT INFORMATION
  Report Type: Spontaneous
  Country: US (occurrence: US)
  Receive Date: 20240401
  Receipt Date: 20250227
  Transmission Date: 20250409
  Serious: Yes (Hospitalization, Other)
  Sender: JOHNSON AND JOHNSON
  Company Number: US-JNJFOC-20240386407

PATIENT
  Age: 75 Year
  Sex: Male

DRUGS (9)
  1. ERLEADA [Suspect]
     Active Substance: APALUTAMIDE
     Indication: Neoplasm malignant
     Route: 048
     Dates: start: 20240312
  2. ORGOVYX [Suspect]
     Active Substance: RELUGOLIX
     Indication: Prostate cancer
     Route: 048
     Dates: start: 20240312
  3. ORGOVYX [Suspect]
     Active Substance: RELUGOLIX
     Route: 048
  4. ORGOVYX [Suspect]
     Active Substance: RELUGOLIX
     Route: 048
  5. ORGOVYX [Suspect]
     Active Substance: RELUGOLIX
     Route: 048
  6. ORGOVYX [Suspect]
     Active Substance: RELUGOLIX
     Route: 048
  7. ELIQUIS [Interacting]
     Active Substance: APIXABAN
     Indication: Product used for unknown indication
  8. SAVAYSA [Concomitant]
     Active Substance: EDOXABAN TOSYLATE
  9. HEPARIN [Concomitant]
     Active Substance: HEPARIN SODIUM

REACTIONS (20)
  - Syncope [Unknown]
  - Myocardial infarction [Unknown]
  - Pulmonary embolism [Unknown]
  - Balance disorder [Unknown]
  - Defaecation urgency [Unknown]
  - Visual impairment [Recovering/Resolving]
  - Fatigue [Unknown]
  - Dysphagia [Unknown]
  - Stress [Unknown]
  - Anxiety [Unknown]
  - Drug interaction [Unknown]
  - Amnesia [Unknown]
  - White blood cell count decreased [Unknown]
  - Blood pressure decreased [Unknown]
  - Limb discomfort [Unknown]
  - Gait disturbance [Unknown]
  - Hypersensitivity [Unknown]
  - Hot flush [Unknown]
  - Asthenia [Not Recovered/Not Resolved]
  - Incorrect dose administered [Unknown]

NARRATIVE: CASE EVENT DATE: 20240301
